FAERS Safety Report 4716365-7 (Version None)
Quarter: 2005Q3

REPORT INFORMATION
  Report Type: 
  Country: None (occurrence: None)
  Receive Date: 20050715
  Receipt Date: 20050715
  Transmission Date: 20060218
  Serious: Yes (Life-Threatening, Hospitalization, Disabling, Other)
  Sender: FDA-Public Use
  Company Number: None

PATIENT
  Sex: Female
  Weight: 90.7194 kg

DRUGS (4)
  1. PREMARIN [Suspect]
     Indication: HORMONE REPLACEMENT THERAPY
     Dosage: 1.25 MG DAILY ORAL
     Route: 048
     Dates: start: 19941107, end: 19971127
  2. PREMARIN [Suspect]
     Indication: HYSTERECTOMY
     Dosage: 1.25 MG DAILY ORAL
     Route: 048
     Dates: start: 19941107, end: 19971127
  3. PREMARIN [Suspect]
     Indication: HORMONE REPLACEMENT THERAPY
     Dosage: .625 MG DAILY ORAL
     Route: 048
     Dates: start: 19971128, end: 19990710
  4. PREMARIN [Suspect]
     Indication: HYSTERECTOMY
     Dosage: .625 MG DAILY ORAL
     Route: 048
     Dates: start: 19971128, end: 19990710

REACTIONS (30)
  - ABDOMINAL HERNIA [None]
  - ANHEDONIA [None]
  - ANXIETY [None]
  - ARTHRALGIA [None]
  - BACK PAIN [None]
  - BREAST TENDERNESS [None]
  - DEPRESSED MOOD [None]
  - DEPRESSION [None]
  - DISCOMFORT [None]
  - DIZZINESS [None]
  - DYSPNOEA [None]
  - ECONOMIC PROBLEM [None]
  - FAMILY STRESS [None]
  - FATIGUE [None]
  - FEAR [None]
  - HAEMANGIOMA [None]
  - HEADACHE [None]
  - HEPATIC CYST [None]
  - HEPATIC STEATOSIS [None]
  - HYPERTENSION [None]
  - HYPOAESTHESIA [None]
  - INCISION SITE COMPLICATION [None]
  - LIPOMA [None]
  - MENTAL DISORDER [None]
  - NAUSEA [None]
  - OEDEMA PERIPHERAL [None]
  - OVARIAN CANCER [None]
  - PAIN [None]
  - PANIC REACTION [None]
  - SPINAL DISORDER [None]
